FAERS Safety Report 21699963 (Version 1)
Quarter: 2022Q4

REPORT INFORMATION
  Report Type: Spontaneous
  Country: US (occurrence: US)
  Receive Date: 20221208
  Receipt Date: 20221208
  Transmission Date: 20230113
  Serious: No
  Sender: FDA-Public Use
  Company Number: US-BIOVITRUM-2022US14230

PATIENT
  Sex: Male
  Weight: 8 kg

DRUGS (5)
  1. SYNAGIS [Suspect]
     Active Substance: PALIVIZUMAB
     Indication: Cystic fibrosis
     Dates: start: 202203
  2. SYNAGIS [Suspect]
     Active Substance: PALIVIZUMAB
     Indication: Low birth weight baby
  3. SYNAGIS [Suspect]
     Active Substance: PALIVIZUMAB
     Indication: Premature baby
  4. MULTIVITAMIN-IRON-FLUORIDE [Concomitant]
  5. CREON 12K-38K-60 CAPSULE DR [Concomitant]

REACTIONS (3)
  - Respiratory syncytial virus infection [Unknown]
  - Cough [Unknown]
  - Viral infection [Unknown]
